FAERS Safety Report 6654538-7 (Version None)
Quarter: 2010Q1

REPORT INFORMATION
  Report Type: 
  Country: None (occurrence: None)
  Receive Date: 20100326
  Receipt Date: 20100315
  Transmission Date: 20100710
  Serious: Yes (Other)
  Sender: FDA-Public Use
  Company Number: US-PFIZER INC-2010033789

PATIENT
  Sex: Male
  Weight: 121 kg

DRUGS (15)
  1. NAVANE [Suspect]
     Indication: SCHIZOPHRENIA, PARANOID TYPE
     Dosage: 2 MG, DAILY
     Route: 048
     Dates: start: 20100312
  2. WARFARIN [Concomitant]
     Dosage: 7.5 MG, UNK
  3. ABILIFY [Concomitant]
     Dosage: 30 MG, UNK
     Route: 048
  4. DOXAZOSIN [Concomitant]
     Dosage: 2 MG, UNK
  5. GEMFIBROZIL [Concomitant]
     Dosage: 600 MG, 2X/DAY
     Route: 048
  6. LISINOPRIL [Concomitant]
     Dosage: 5 MG, DAILY
     Route: 048
  7. METFORMIN [Concomitant]
     Dosage: 500 MG, DAILY
     Route: 048
  8. NICOTINE [Concomitant]
     Dosage: 14 MG, UNK
     Route: 062
  9. LOVAZA [Concomitant]
     Dosage: 1 MG, DAILY
     Route: 048
  10. LEVOTHYROXINE [Concomitant]
     Dosage: 0.175 MG, DAILY
  11. TRAMADOL [Concomitant]
     Dosage: 25 MG, UNK
     Route: 048
  12. ZYPREXA [Concomitant]
     Indication: AGITATION
     Dosage: 5 MG, UNK
     Route: 048
  13. TRAZODONE [Concomitant]
     Indication: INSOMNIA
     Dosage: 50 MG, UNK
     Route: 048
  14. IMODIUM [Concomitant]
     Dosage: 2 MG, UNK
  15. ACETYLSALICYLIC ACID [Concomitant]
     Dosage: 81 MG, DAILY

REACTIONS (1)
  - INTERNATIONAL NORMALISED RATIO INCREASED [None]
